FAERS Safety Report 17740872 (Version 1)
Quarter: 2020Q2

REPORT INFORMATION
  Report Type: Report from Study
  Country: US (occurrence: US)
  Receive Date: 20200504
  Receipt Date: 20200504
  Transmission Date: 20200714
  Serious: Yes (Hospitalization)
  Sender: FDA-Public Use
  Company Number: US-EISAI MEDICAL RESEARCH-EC-2020-068020

PATIENT
  Age: 69 Year
  Sex: Female
  Weight: 72 kg

DRUGS (2)
  1. LENVIMA [Suspect]
     Active Substance: LENVATINIB
     Indication: ENDOMETRIAL CANCER
     Route: 048
     Dates: start: 20191226, end: 20200225
  2. PEMBROLIZUMAB. [Suspect]
     Active Substance: PEMBROLIZUMAB
     Indication: ENDOMETRIAL CANCER
     Dosage: DOSE AND FREQUENCY UNKNOWN
     Route: 041
     Dates: end: 2020

REACTIONS (4)
  - Swelling [Unknown]
  - Dyspnoea [Unknown]
  - Renal disorder [Unknown]
  - Diarrhoea [Recovered/Resolved]

NARRATIVE: CASE EVENT DATE: 201912
